FAERS Safety Report 5819728-1 (Version None)
Quarter: 2008Q3

REPORT INFORMATION
  Report Type: 
  Country: None (occurrence: None)
  Receive Date: 20080723
  Receipt Date: 20080712
  Transmission Date: 20090109
  Serious: No
  Sender: FDA-Public Use
  Company Number: US-PFIZER INC-2008050943

PATIENT
  Age: 31 Year
  Sex: Male
  Weight: 99.34 kg

DRUGS (3)
  1. CALAN [Suspect]
     Indication: HEART DISEASE CONGENITAL
     Route: 048
  2. DIGOXIN [Concomitant]
     Dosage: DAILY DOSE:.25MG-FREQ:DAILY
  3. ENALAPRIL MALEATE [Concomitant]
     Dosage: DAILY DOSE:10MG-FREQ:DAILY

REACTIONS (1)
  - NO ADVERSE EVENT [None]
